FAERS Safety Report 5673157-2 (Version None)
Quarter: 2008Q1

REPORT INFORMATION
  Report Type: 
  Country: None (occurrence: None)
  Receive Date: 20080319
  Receipt Date: 20080314
  Transmission Date: 20080703
  Serious: Yes (Other)
  Sender: FDA-Public Use
  Company Number: US-ALLERGAN-0802132US

PATIENT
  Sex: Female

DRUGS (4)
  1. BOTOX COSMETIC [Suspect]
     Indication: SKIN WRINKLING
     Dosage: 68 UNITS, SINGLE
     Route: 030
     Dates: start: 20080220, end: 20080220
  2. JUVEDERM [Suspect]
     Indication: SKIN WRINKLING
     Dosage: UNK, UNK
     Route: 023
     Dates: start: 20080220, end: 20080220
  3. CELEXA [Concomitant]
     Indication: ANXIETY
  4. CELEXA [Concomitant]
     Indication: DEPRESSION

REACTIONS (5)
  - DYSPNOEA [None]
  - EYE PAIN [None]
  - HEART RATE INCREASED [None]
  - MIGRAINE [None]
  - SWELLING FACE [None]
